FAERS Safety Report 10089599 (Version 1)
Quarter: 2014Q2

REPORT INFORMATION
  Report Type: Spontaneous
  Country: US (occurrence: None)
  Receive Date: 20140418
  Receipt Date: 20140418
  Transmission Date: 20141212
  Serious: Yes (Life-Threatening, Hospitalization)
  Sender: FDA-Public Use
  Company Number: None

PATIENT
  Age: 89 Year
  Sex: Male
  Weight: 87.9 kg

DRUGS (6)
  1. PRADAXA [Suspect]
     Indication: ATRIAL FIBRILLATION
     Dosage: 1
     Route: 048
     Dates: start: 20101229, end: 20140416
  2. HYDROCHLOROTHIAZIDE/LISINOPRIL [Concomitant]
  3. MOTOPROLOL [Concomitant]
  4. FERROUS SULFATE [Concomitant]
  5. FOLIC ACID [Concomitant]
  6. LANSOPRAZOLE [Concomitant]

REACTIONS (4)
  - Transient ischaemic attack [None]
  - Fall [None]
  - Head injury [None]
  - Subdural haemorrhage [None]
